FAERS Safety Report 8826281 (Version 1)
Quarter: 2012Q4

REPORT INFORMATION
  Report Type: 
  Country: US (occurrence: US)
  Receive Date: 20121008
  Receipt Date: 20121008
  Transmission Date: 20130627
  Serious: Yes (Death)
  Sender: FDA-Public Use
  Company Number: US-CELGENEUS-163-21880-12100698

PATIENT
  Age: 75 Year
  Sex: Male

DRUGS (3)
  1. REVLIMID [Suspect]
     Indication: MULTIPLE MYELOMA
     Dosage: 10 Milligram
     Route: 048
     Dates: start: 200812
  2. REVLIMID [Suspect]
     Dosage: 15mg-10mg
     Route: 048
     Dates: start: 200901
  3. REVLIMID [Suspect]
     Dosage: 15 Milligram
     Route: 048
     Dates: start: 201110

REACTIONS (1)
  - Plasma cell myeloma [Fatal]
